FAERS Safety Report 12319071 (Version 2)
Quarter: 2016Q2

REPORT INFORMATION
  Report Type: Spontaneous
  Country: DE (occurrence: DE)
  Receive Date: 20160429
  Receipt Date: 20160509
  Transmission Date: 20160815
  Serious: Yes (Life-Threatening, Hospitalization)
  Sender: FDA-Public Use
  Company Number: DE-BAYER-2016-078171

PATIENT
  Age: 58 Year
  Sex: Female
  Weight: 49 kg

DRUGS (1)
  1. GADOVIST [Suspect]
     Active Substance: GADOBUTROL
     Indication: SCAN
     Dosage: 15 ML, ONCE
     Dates: start: 20160420, end: 20160420

REACTIONS (6)
  - Eye movement disorder [None]
  - Chest pain [None]
  - Myocardial infarction [None]
  - Unresponsive to stimuli [None]
  - Contrast media reaction [None]
  - Musculoskeletal stiffness [None]

NARRATIVE: CASE EVENT DATE: 20160420
